FAERS Safety Report 8490701-0 (Version None)
Quarter: 2012Q3

REPORT INFORMATION
  Report Type: 
  Country: None (occurrence: None)
  Receive Date: 20120706
  Receipt Date: 20120623
  Transmission Date: 20120928
  Serious: Yes (Death, Hospitalization)
  Sender: FDA-Public Use
  Company Number: ES-PAR PHARMACEUTICAL, INC-2012SCPR004470

PATIENT

DRUGS (11)
  1. FENTANYL CITRATE [Suspect]
     Dosage: 04 UNITS MAXIMUM PER DAY
     Route: 048
  2. ALPRAZOLAM [Concomitant]
     Indication: ANXIETY
     Dosage: UNK UNK, UNKNOWN
     Route: 065
  3. GABAPENTIN [Concomitant]
     Indication: PRODUCT USED FOR UNKNOWN INDICATION
     Dosage: 600 MG, EVERY 8 HOURS
     Route: 065
  4. VENLAFAXINE [Concomitant]
     Indication: PRODUCT USED FOR UNKNOWN INDICATION
     Dosage: 75 MG, / DAY
     Route: 065
  5. OXYCODONE HCL [Suspect]
     Indication: CANCER PAIN
     Dosage: 65 MG, SLOW RELEASE EVERY 8 HOURS
     Route: 048
  6. NSAID'S [Concomitant]
     Indication: PRODUCT USED FOR UNKNOWN INDICATION
     Dosage: UNK, UNKNOWN
     Route: 065
  7. FENTANYL CITRATE [Suspect]
     Indication: BREAKTHROUGH PAIN
     Dosage: 1200 MCG, PRN (APPROX 08 UNITS PER DAY)
     Route: 048
  8. FENTANYL CITRATE [Suspect]
     Indication: CANCER PAIN
     Dosage: THREE 100 MCG FENTANYL PATCHES SIMULTANEOUSLY
     Route: 062
  9. OXYCODONE HCL [Suspect]
     Dosage: UNK
  10. FENTANYL CITRATE [Suspect]
     Dosage: 200 MCG, 72 HOURS
     Route: 062
  11. STEROIDS [Concomitant]
     Indication: PRODUCT USED FOR UNKNOWN INDICATION
     Dosage: UNK, UNKNOWN
     Route: 065

REACTIONS (5)
  - SELF-MEDICATION [None]
  - DEATH [None]
  - DRUG DEPENDENCE [None]
  - INTENTIONAL DRUG MISUSE [None]
  - DRUG ABUSE [None]
